FAERS Safety Report 4950227-5 (Version None)
Quarter: 2006Q1

REPORT INFORMATION
  Report Type: 
  Country: None (occurrence: None)
  Receive Date: 20060315
  Receipt Date: 20060306
  Transmission Date: 20060701
  Serious: Yes (Death, Other)
  Sender: FDA-Public Use
  Company Number: GXKR2006FR01337

PATIENT
  Age: 45 Year
  Sex: Male

DRUGS (4)
  1. RIBAVIRIN [Suspect]
     Indication: HEPATITIS C
     Dosage: 1200 MG, QD : 1000 MG, QD
     Dates: start: 20021201
  2. INTERFERON ALPHA (NGX)(INTERFERON ALPHA) [Suspect]
     Indication: CHRONIC HEPATITIS
     Dosage: 6000000 IU, QW3  : 3000000 IU, QW3
  3. INTERFERON ALPHA (NGX)(INTERFERON ALPHA) [Suspect]
     Indication: CHRONIC HEPATITIS
     Dosage: 6000000 IU, QW3  : 3000000 IU, QW3
  4. PEGINTERFERON ALFA-2B(PEGINTERFERON ALFA-2B) [Suspect]
     Indication: HEPATITIS C
     Dosage: SEE IMAGE
     Dates: start: 20021201

REACTIONS (13)
  - BLOOD COUNT ABNORMAL [None]
  - CARDIOGENIC SHOCK [None]
  - CARDIOMEGALY [None]
  - CARDIOMYOPATHY [None]
  - DILATATION VENTRICULAR [None]
  - DYSPNOEA [None]
  - FATIGUE [None]
  - HYPOKINESIA [None]
  - NEUTROPENIA [None]
  - PALPITATIONS [None]
  - PLEURAL EFFUSION [None]
  - WEIGHT DECREASED [None]
  - WOLFF-PARKINSON-WHITE SYNDROME [None]
